FAERS Safety Report 5673019-0 (Version None)
Quarter: 2008Q1

REPORT INFORMATION
  Report Type: 
  Country: None (occurrence: None)
  Receive Date: 20080319
  Receipt Date: 20080108
  Transmission Date: 20080703
  Serious: Yes (Other)
  Sender: FDA-Public Use
  Company Number: US-ASTRAZENECA-2007UW28915

PATIENT
  Age: 61 Year
  Sex: Female
  Weight: 81.8 kg

DRUGS (5)
  1. SYMBICORT [Suspect]
     Indication: ASTHMA
     Dosage: 80/4.5 UG QD
     Route: 055
     Dates: start: 20071114, end: 20071114
  2. ALBUTEROL [Concomitant]
     Indication: ASTHMA
     Dosage: 0.5 MG 2-3 X PER DAY
     Dates: start: 20020101
  3. PULMICORT RESPULES [Concomitant]
     Indication: ASTHMA
     Dosage: 0.5 MG 2-3 X PER DAY
     Dates: start: 20020101
  4. ZANTAC [Concomitant]
     Indication: GASTROOESOPHAGEAL REFLUX DISEASE
     Route: 048
     Dates: start: 20070401
  5. ZYFLO [Concomitant]
     Indication: ASTHMA
     Route: 048
     Dates: start: 20060901

REACTIONS (1)
  - BRONCHOSPASM [None]
